FAERS Safety Report 20991617 (Version 1)
Quarter: 2022Q2

REPORT INFORMATION
  Report Type: Spontaneous
  Country: ES (occurrence: ES)
  Receive Date: 20220622
  Receipt Date: 20220622
  Transmission Date: 20220721
  Serious: Yes (Other)
  Sender: FDA-Public Use
  Company Number: ES-BIOGEN-2022BI01130135

PATIENT
  Sex: Male

DRUGS (2)
  1. AMOXICILLIN\CLAVULANIC ACID [Suspect]
     Active Substance: AMOXICILLIN\CLAVULANIC ACID
     Indication: Toothache
     Dosage: 1 DOSAGE FORM, 3 TIMES A DAY ((875/125))
     Route: 065
  2. TECFIDERA [Suspect]
     Active Substance: DIMETHYL FUMARATE
     Indication: Relapsing-remitting multiple sclerosis
     Dosage: 240 MILLIGRAM, TWO TIMES A DAY (FOR 3 YEARS)
     Route: 065

REACTIONS (3)
  - Cellulitis [Not Recovered/Not Resolved]
  - Dizziness [Not Recovered/Not Resolved]
  - Toothache [Not Recovered/Not Resolved]
